FAERS Safety Report 13595712 (Version 1)
Quarter: 2017Q2

REPORT INFORMATION
  Report Type: Spontaneous
  Country: US (occurrence: US)
  Receive Date: 20170531
  Receipt Date: 20170531
  Transmission Date: 20170830
  Serious: No
  Sender: FDA-Public Use
  Company Number: US-JNJFOC-20170500388

PATIENT

DRUGS (5)
  1. TYLENOL [Suspect]
     Active Substance: ACETAMINOPHEN
     Route: 065
  2. CODEINE [Concomitant]
     Active Substance: CODEINE
     Indication: SLEEP DISORDER THERAPY
     Route: 065
  3. TYLENOL [Suspect]
     Active Substance: ACETAMINOPHEN
     Indication: SLEEP DISORDER THERAPY
     Route: 065
  4. MELATONIN [Concomitant]
     Active Substance: MELATONIN
     Indication: SLEEP DISORDER THERAPY
     Route: 065
  5. GUAIFENESIN. [Concomitant]
     Active Substance: GUAIFENESIN
     Indication: SLEEP DISORDER THERAPY
     Route: 065

REACTIONS (1)
  - Product use in unapproved indication [Unknown]
